FAERS Safety Report 10651699 (Version 1)
Quarter: 2014Q4

REPORT INFORMATION
  Report Type: Spontaneous
  Country: US (occurrence: None)
  Receive Date: 20141212
  Receipt Date: 20141212
  Transmission Date: 20150529
  Serious: No
  Sender: FDA-Public Use
  Company Number: None

PATIENT
  Age: 58 Year
  Sex: Female
  Weight: 82.56 kg

DRUGS (5)
  1. SOLU-MEDROL [Suspect]
     Active Substance: METHYLPREDNISOLONE SODIUM SUCCINATE
     Route: 042
     Dates: start: 20141209, end: 20141209
  2. ALBUTEROL MDI [Concomitant]
  3. HYDROCLOROTHIAZIDE [Concomitant]
  4. ESTRADIOL. [Concomitant]
     Active Substance: ESTRADIOL
  5. IRBESARTAN. [Concomitant]
     Active Substance: IRBESARTAN

REACTIONS (5)
  - Ocular hyperaemia [None]
  - Abnormal behaviour [None]
  - Injection site pain [None]
  - Dysgeusia [None]
  - Dyspepsia [None]

NARRATIVE: CASE EVENT DATE: 20141209
